FAERS Safety Report 5831404-8 (Version None)
Quarter: 2008Q3

REPORT INFORMATION
  Report Type: 
  Country: None (occurrence: None)
  Receive Date: 20080801
  Receipt Date: 20080722
  Transmission Date: 20090109
  Serious: Yes (Other)
  Sender: FDA-Public Use
  Company Number: DE-ABBOTT-08P-062-0465517-00

PATIENT
  Age: 60 Year
  Sex: Male

DRUGS (1)
  1. ERGENYL SOLUTION [Suspect]
     Indication: STATUS EPILEPTICUS
     Route: 041
     Dates: start: 20080717, end: 20080717

REACTIONS (2)
  - DERMATITIS BULLOUS [None]
  - INFUSION SITE INDURATION [None]
